FAERS Safety Report 6106768-0 (Version None)
Quarter: 2009Q1

REPORT INFORMATION
  Report Type: 
  Country: None (occurrence: None)
  Receive Date: 20090304
  Receipt Date: 20090224
  Transmission Date: 20090719
  Serious: Yes (Death)
  Sender: FDA-Public Use
  Company Number: WAES 0902USA01019

PATIENT
  Age: 84 Year
  Sex: Male

DRUGS (12)
  1. PEPCID RPD [Suspect]
     Dosage: 40 MG/DAILY PO
     Route: 048
     Dates: start: 20071112
  2. CELECOXIB [Suspect]
     Indication: OSTEOARTHRITIS
     Dosage: 200 MG/DAILY PO
     Route: 048
     Dates: start: 20080121, end: 20080302
  3. CELECOXIB [Suspect]
     Indication: OSTEOARTHRITIS
     Dosage: 200 MG/DAILY PO
     Route: 048
     Dates: start: 20080308, end: 20080404
  4. CELECOXIB [Suspect]
     Indication: OSTEOARTHRITIS
     Dosage: 200 MG/DAILY PO
     Route: 048
     Dates: start: 20080418, end: 20080429
  5. CELECOXIB [Suspect]
     Indication: OSTEOARTHRITIS
     Dosage: 200 MG/DAILY PO
     Route: 048
     Dates: start: 20080512
  6. BENET [Concomitant]
  7. DIAZEPAM [Concomitant]
  8. LAC-B [Concomitant]
  9. MUCOSTA [Concomitant]
  10. THEO-DUR [Concomitant]
  11. URSO 250 [Concomitant]
  12. ZYLORIC [Concomitant]

REACTIONS (2)
  - GASTROINTESTINAL HAEMORRHAGE [None]
  - HAEMATEMESIS [None]
